FAERS Safety Report 17021793 (Version 1)
Quarter: 2019Q4

REPORT INFORMATION
  Report Type: Spontaneous
  Country: GB (occurrence: GB)
  Receive Date: 20191112
  Receipt Date: 20191112
  Transmission Date: 20200122
  Serious: Yes (Other)
  Sender: FDA-Public Use
  Company Number: GB-BAXTER-2019BAX022214

PATIENT
  Age: 30 Year
  Sex: Female
  Weight: 119 kg

DRUGS (12)
  1. ERGOMETRINE [Suspect]
     Active Substance: ERGONOVINE MALEATE
     Indication: POSTPARTUM HAEMORRHAGE
     Route: 042
     Dates: start: 20180107
  2. MORPHINE [Suspect]
     Active Substance: MORPHINE
     Indication: POSTOPERATIVE ANALGESIA
     Route: 042
     Dates: start: 20180107
  3. FENTANYL. [Suspect]
     Active Substance: FENTANYL
     Indication: INDUCTION OF ANAESTHESIA
     Route: 042
     Dates: start: 20180107
  4. ATRACURIUM [Suspect]
     Active Substance: ATRACURIUM
     Indication: MUSCLE RELAXANT THERAPY
     Route: 042
     Dates: start: 20180107
  5. CARBOPROST [Suspect]
     Active Substance: CARBOPROST
     Indication: POSTPARTUM HAEMORRHAGE
     Route: 030
     Dates: start: 20180107
  6. SYNTOCINON [Suspect]
     Active Substance: OXYTOCIN
     Indication: POSTPARTUM HAEMORRHAGE
     Dosage: INFUSION - 20 IU IN 50MLS 0.9% SALINE
     Route: 042
     Dates: start: 20180107
  7. METRONIDAZOLE 500 MG / 100 ML INTRAVENOUS INFUSION [Suspect]
     Active Substance: METRONIDAZOLE
     Indication: POSTPARTUM SEPSIS
     Route: 042
     Dates: start: 20180107
  8. CO-AMOXICLAV [Suspect]
     Active Substance: AMOXICILLIN\CLAVULANATE POTASSIUM
     Indication: POSTPARTUM SEPSIS
     Route: 042
     Dates: start: 20180107
  9. TRANEXAMIC ACID. [Suspect]
     Active Substance: TRANEXAMIC ACID
     Indication: POSTPARTUM HAEMORRHAGE
     Route: 042
     Dates: start: 20180107
  10. ONDANSETRON 2MG/ML SOLUTION FOR INJECTION [Suspect]
     Active Substance: ONDANSETRON
     Indication: PROPHYLAXIS OF NAUSEA AND VOMITING
     Route: 042
     Dates: start: 20180107
  11. THIOPENTAL [Suspect]
     Active Substance: THIOPENTAL
     Indication: INDUCTION OF ANAESTHESIA
     Route: 042
     Dates: start: 20180107
  12. SUXAMETHONIUM [Suspect]
     Active Substance: SUCCINYLCHOLINE
     Indication: INDUCTION OF ANAESTHESIA
     Route: 042
     Dates: start: 20180107

REACTIONS (5)
  - Hypoxia [Recovered/Resolved]
  - Angioedema [Recovered/Resolved]
  - Wheezing [Recovered/Resolved]
  - Hypotension [Recovered/Resolved]
  - Urticaria [Recovered/Resolved]

NARRATIVE: CASE EVENT DATE: 20180107
